FAERS Safety Report 10168182 (Version 1)
Quarter: 2014Q2

REPORT INFORMATION
  Report Type: Spontaneous
  Country: US (occurrence: US)
  Receive Date: 20140512
  Receipt Date: 20140512
  Transmission Date: 20141212
  Serious: No
  Sender: FDA-Public Use
  Company Number: US-ASTRAZENECA-2013SE68148

PATIENT
  Age: 70 Year
  Sex: Female
  Weight: 59 kg

DRUGS (3)
  1. FASLODEX [Suspect]
     Indication: BREAST CANCER METASTATIC
     Route: 030
     Dates: start: 20130827
  2. DOXYCYCLINE [Concomitant]
     Indication: GINGIVITIS
  3. VITAMINS [Concomitant]

REACTIONS (9)
  - Muscular weakness [Unknown]
  - Pain in extremity [Unknown]
  - Vaginal discharge [Unknown]
  - Urine analysis abnormal [Not Recovered/Not Resolved]
  - Flatulence [Unknown]
  - Abnormal faeces [Not Recovered/Not Resolved]
  - Glossodynia [Not Recovered/Not Resolved]
  - Limb discomfort [Unknown]
  - Balance disorder [Unknown]
